FAERS Safety Report 23282689 (Version 1)
Quarter: 2023Q4

REPORT INFORMATION
  Report Type: Report from Study
  Country: HN (occurrence: HN)
  Receive Date: 20231211
  Receipt Date: 20231211
  Transmission Date: 20240110
  Serious: Yes (Life-Threatening, Hospitalization)
  Sender: FDA-Public Use
  Company Number: HN-002147023-NVSC2023HN261839

PATIENT
  Sex: Male

DRUGS (2)
  1. EXFORGE [Suspect]
     Active Substance: AMLODIPINE BESYLATE\VALSARTAN
     Indication: Hypertension
     Dosage: UNK (160/5MG, QD)
     Route: 048
     Dates: start: 2022, end: 202311
  2. EXFORGE HCT [Suspect]
     Active Substance: AMLODIPINE BESYLATE\HYDROCHLOROTHIAZIDE\VALSARTAN
     Indication: Hypertension
     Dosage: UNK (10/320/25 MG, QD)
     Route: 048
     Dates: start: 20231206

REACTIONS (3)
  - Illness [Unknown]
  - Blood pressure abnormal [Unknown]
  - Malaise [Unknown]
